FAERS Safety Report 7282336-2 (Version None)
Quarter: 2011Q1

REPORT INFORMATION
  Report Type: 
  Country: None (occurrence: None)
  Receive Date: 20110209
  Receipt Date: 20110201
  Transmission Date: 20110831
  Serious: Yes (Other)
  Sender: FDA-Public Use
  Company Number: US-TEVA-265623USA

PATIENT
  Sex: Female

DRUGS (3)
  1. YAZ [Concomitant]
     Indication: CONTRACEPTION
     Route: 048
  2. UNKNOWN ANTIBIOTIC [Concomitant]
     Indication: STREPTOCOCCAL INFECTION
  3. CLARAVIS [Suspect]
     Route: 048
     Dates: start: 20100723, end: 20110101

REACTIONS (1)
  - UNINTENDED PREGNANCY [None]
